FAERS Safety Report 17463854 (Version 1)
Quarter: 2020Q1

REPORT INFORMATION
  Report Type: Spontaneous
  Country: US (occurrence: US)
  Receive Date: 20200226
  Receipt Date: 20200226
  Transmission Date: 20200409
  Serious: Yes (Other)
  Sender: FDA-Public Use
  Company Number: US-BAUSCH-BL-2020-005197

PATIENT
  Sex: Female
  Weight: 79.45 kg

DRUGS (2)
  1. PROTONIX [Suspect]
     Active Substance: PANTOPRAZOLE SODIUM
     Indication: PRODUCT USED FOR UNKNOWN INDICATION
     Route: 065
     Dates: start: 202002, end: 202002
  2. PEPCID [Suspect]
     Active Substance: FAMOTIDINE
     Indication: PRODUCT USED FOR UNKNOWN INDICATION
     Route: 065

REACTIONS (14)
  - Systemic lupus erythematosus [Not Recovered/Not Resolved]
  - Vision blurred [Not Recovered/Not Resolved]
  - Symptom recurrence [Not Recovered/Not Resolved]
  - Dyspnoea [Not Recovered/Not Resolved]
  - Adverse event [Unknown]
  - Tachycardia [Not Recovered/Not Resolved]
  - Eye pain [Not Recovered/Not Resolved]
  - Weight decreased [Recovered/Resolved]
  - Reaction to excipient [Unknown]
  - Malaise [Unknown]
  - Abnormal sensation in eye [Not Recovered/Not Resolved]
  - Nightmare [Unknown]
  - Pollakiuria [Unknown]
  - Urine output increased [Unknown]

NARRATIVE: CASE EVENT DATE: 202002
